FAERS Safety Report 6832960-3 (Version None)
Quarter: 2010Q3

REPORT INFORMATION
  Report Type: 
  Country: None (occurrence: None)
  Receive Date: 20100712
  Receipt Date: 20070319
  Transmission Date: 20110219
  Serious: No
  Sender: FDA-Public Use
  Company Number: US-PFIZER INC-2007022106

PATIENT
  Sex: Female
  Weight: 58.97 kg

DRUGS (6)
  1. CHANTIX [Suspect]
     Dates: start: 20070309
  2. FOSAMAX [Concomitant]
     Indication: OSTEOPOROSIS
     Route: 045
  3. AMBIEN [Concomitant]
  4. CARDIOVASCULAR SYSTEM DRUGS [Concomitant]
  5. ANTIBIOTICS [Concomitant]
     Indication: PNEUMONIA
     Dates: end: 20070301
  6. ALL OTHER THERAPEUTIC PRODUCTS [Concomitant]

REACTIONS (3)
  - ABDOMINAL DISTENSION [None]
  - FLATULENCE [None]
  - NAUSEA [None]
